FAERS Safety Report 6204457-5 (Version None)
Quarter: 2009Q2

REPORT INFORMATION
  Report Type: 
  Country: None (occurrence: None)
  Receive Date: 20090527
  Receipt Date: 20090512
  Transmission Date: 20091009
  Serious: Yes (Death)
  Sender: FDA-Public Use
  Company Number: DE-GENENTECH-283210

PATIENT
  Sex: Female

DRUGS (6)
  1. BEVACIZUMAB [Suspect]
     Indication: BREAST CANCER METASTATIC
     Dosage: 750 MG, UNK
     Route: 065
     Dates: start: 20090423, end: 20090507
  2. TAXOL [Suspect]
     Indication: BREAST CANCER METASTATIC
     Dosage: 163.8 MG, UNK
     Route: 065
     Dates: start: 20090424, end: 20090507
  3. ZOMETA [Suspect]
     Indication: METASTASES TO BONE
     Dosage: UNK
     Route: 065
     Dates: start: 20090430
  4. L-THYROXIN [Suspect]
     Indication: HYPOTHYROIDISM
     Dosage: 75 MG, QD
     Route: 048
  5. ENALAPRIL MALEATE [Suspect]
     Indication: HYPERTENSION
     Dosage: 1 TABLET, QD
     Route: 048
  6. SEPTACORD [Suspect]
     Indication: ARRHYTHMIA
     Dosage: 1 UNK, QD
     Route: 065

REACTIONS (1)
  - CARDIAC FAILURE [None]
